FAERS Safety Report 5549339-7 (Version None)
Quarter: 2007Q4

REPORT INFORMATION
  Report Type: 
  Country: None (occurrence: None)
  Receive Date: 20071212
  Receipt Date: 20071130
  Transmission Date: 20080405
  Serious: Yes (Other)
  Sender: FDA-Public Use
  Company Number: HQWYE309617OCT03

PATIENT
  Sex: Female
  Weight: 49.94 kg

DRUGS (1)
  1. PREMPRO [Suspect]
     Dosage: UNSPECIFED DOSAGE
     Route: 048
     Dates: start: 19970101, end: 19980101

REACTIONS (1)
  - BREAST CANCER METASTATIC [None]
